FAERS Safety Report 5258441-9 (Version None)
Quarter: 2007Q1

REPORT INFORMATION
  Report Type: 
  Country: None (occurrence: None)
  Receive Date: 20061217
  Receipt Date: 20060814
  Transmission Date: 20070707
  Serious: Yes (Other)
  Sender: FDA-Public Use
  Company Number: US-JNJFOC-20060703680

PATIENT
  Age: 64 Year
  Sex: Female
  Weight: 72.5755 kg

DRUGS (7)
  1. LEVAQUIN [Suspect]
     Indication: SINUSITIS
     Dosage: 750 MG, 1 IN 1 DAY, ORAL
     Route: 048
     Dates: start: 20060701, end: 20060703
  2. RESTORIL [Concomitant]
  3. SYNTHROID [Concomitant]
  4. SINGULAR (MONTELUKAST SODIUM) [Concomitant]
  5. CARDIZEM [Concomitant]
  6. NEXIUM [Concomitant]
  7. ASPIRIN [Concomitant]

REACTIONS (1)
  - ROTATOR CUFF SYNDROME [None]
